FAERS Safety Report 5273081-3 (Version None)
Quarter: 2007Q1

REPORT INFORMATION
  Report Type: 
  Country: None (occurrence: None)
  Receive Date: 20070322
  Receipt Date: 20070312
  Transmission Date: 20070707
  Serious: Yes (Other)
  Sender: FDA-Public Use
  Company Number: GB-ABBOTT-07P-167-0361832-00

PATIENT
  Sex: Female

DRUGS (2)
  1. HUMIRA [Suspect]
     Indication: DRUG USE FOR UNKNOWN INDICATION
     Route: 058
  2. HUMIRA [Suspect]

REACTIONS (6)
  - C-REACTIVE PROTEIN INCREASED [None]
  - MONARTHRITIS [None]
  - MYALGIA [None]
  - PAIN [None]
  - SWELLING [None]
  - WHITE BLOOD CELL COUNT INCREASED [None]
